FAERS Safety Report 8333092-8 (Version None)
Quarter: 2012Q2

REPORT INFORMATION
  Report Type: 
  Country: None (occurrence: None)
  Receive Date: 20120503
  Receipt Date: 20120430
  Transmission Date: 20120825
  Serious: Yes (Other)
  Sender: FDA-Public Use
  Company Number: PHEH2012US009083

PATIENT
  Sex: Male

DRUGS (5)
  1. METOPROLOL TARTRATE [Suspect]
     Dosage: 1 DF, IN THE MORNING
  2. METOPROLOL TARTRATE [Suspect]
     Dosage: 1 DF, IN THE EVENING
  3. LISINOPRIL [Concomitant]
     Dosage: 1 DF, IN THE EVENING
  4. LISINOPRIL [Concomitant]
     Dosage: 1 DF, IN THE MORNING
  5. AMLODIPINE BESYLATE [Concomitant]
     Dosage: 1 DF, PER DAY

REACTIONS (1)
  - HERPES ZOSTER [None]
